FAERS Safety Report 13003374 (Version 1)
Quarter: 2016Q4

REPORT INFORMATION
  Report Type: Report from Study
  Country: JP (occurrence: JP)
  Receive Date: 20161206
  Receipt Date: 20161206
  Transmission Date: 20170207
  Serious: Yes (Other)
  Sender: FDA-Public Use
  Company Number: JP-GILEAD-2015-0175946

PATIENT
  Age: 39 Year
  Sex: Female
  Weight: 53 kg

DRUGS (18)
  1. SELBEX [Concomitant]
     Active Substance: TEPRENONE
     Indication: PULMONARY ARTERIAL HYPERTENSION
     Route: 048
  2. BENET [Concomitant]
     Active Substance: RISEDRONATE SODIUM
     Indication: OSTEOPOROSIS PROPHYLAXIS
     Dosage: UNK
     Dates: start: 20151006
  3. PROCYLIN [Suspect]
     Active Substance: BERAPROST SODIUM
     Dosage: UNK
     Route: 048
     Dates: start: 20130723
  4. MYSLEE [Concomitant]
     Active Substance: ZOLPIDEM TARTRATE
     Dosage: UNK
     Route: 048
  5. MYSLEE [Concomitant]
     Active Substance: ZOLPIDEM TARTRATE
     Dosage: UNK
     Route: 048
     Dates: end: 20120918
  6. ADCIRCA [Concomitant]
     Active Substance: TADALAFIL
     Indication: PULMONARY ARTERIAL HYPERTENSION
     Dosage: UNK
     Route: 048
     Dates: start: 20130205, end: 20130507
  7. AMBRISENTAN [Suspect]
     Active Substance: AMBRISENTAN
     Indication: PULMONARY ARTERIAL HYPERTENSION
     Dosage: 5 MG, QD
     Route: 048
     Dates: start: 20120515
  8. PROCYLIN [Suspect]
     Active Substance: BERAPROST SODIUM
     Indication: PULMONARY ARTERIAL HYPERTENSION
     Dosage: UNK
     Route: 048
     Dates: start: 20130528
  9. PROCYLIN [Suspect]
     Active Substance: BERAPROST SODIUM
     Dosage: UNK
     Route: 048
     Dates: start: 20120529, end: 20130507
  10. AMBRISENTAN [Suspect]
     Active Substance: AMBRISENTAN
     Indication: PULMONARY ARTERIAL HYPERTENSION
  11. PROCYLIN [Suspect]
     Active Substance: BERAPROST SODIUM
     Indication: PULMONARY ARTERIAL HYPERTENSION
     Route: 048
     Dates: start: 20120529, end: 20130506
  12. ADCIRCA [Concomitant]
     Active Substance: TADALAFIL
     Dosage: UNK
     Route: 048
     Dates: start: 20130723
  13. OPALMON [Concomitant]
     Active Substance: LIMAPROST
     Indication: PULMONARY ARTERIAL HYPERTENSION
     Route: 048
     Dates: end: 20120528
  14. PREDONINE [Concomitant]
     Active Substance: PREDNISOLONE\PREDNISOLONE ACETATE\PREDNISOLONE SODIUM SUCCINATE
     Route: 048
  15. ALFACALCIDOL [Concomitant]
     Active Substance: ALFACALCIDOL
     Indication: OSTEOPOROSIS PROPHYLAXIS
     Dosage: UNK
     Dates: start: 20150811
  16. SELBEX [Concomitant]
     Active Substance: TEPRENONE
     Indication: PROPHYLAXIS AGAINST GASTROINTESTINAL ULCER
     Route: 048
  17. PROGRAF [Concomitant]
     Active Substance: TACROLIMUS\TACROLIMUS ANHYDROUS
     Indication: PULMONARY ARTERIAL HYPERTENSION
     Dosage: UNK
     Dates: start: 20121113
  18. PREDONINE [Concomitant]
     Active Substance: PREDNISOLONE\PREDNISOLONE ACETATE\PREDNISOLONE SODIUM SUCCINATE
     Indication: PULMONARY ARTERIAL HYPERTENSION
     Route: 048

REACTIONS (6)
  - Thrombocytopenia [Recovered/Resolved]
  - Menometrorrhagia [Recovered/Resolved]
  - Menorrhagia [Recovering/Resolving]
  - Anaemia [Recovered/Resolved]
  - Anaemia [Recovered/Resolved]
  - Anaemia [Recovered/Resolved]

NARRATIVE: CASE EVENT DATE: 20120529
